FAERS Safety Report 7003862-7 (Version None)
Quarter: 2010Q3

REPORT INFORMATION
  Report Type: 
  Country: None (occurrence: None)
  Receive Date: 20100920
  Receipt Date: 20100105
  Transmission Date: 20110219
  Serious: No
  Sender: FDA-Public Use
  Company Number: US-WYE-H12891410

PATIENT
  Sex: Female

DRUGS (2)
  1. PRISTIQ [Suspect]
     Dosage: UNKNOWN
     Route: 048
  2. ALCOHOL [Suspect]
     Dosage: SOME MIXED DRINKS
     Route: 048

REACTIONS (1)
  - HYPOAESTHESIA [None]
